FAERS Safety Report 4404413-3 (Version None)
Quarter: 2004Q3

REPORT INFORMATION
  Report Type: 
  Country: None (occurrence: None)
  Receive Date: 20040719
  Receipt Date: 20040706
  Transmission Date: 20050211
  Serious: Yes (Hospitalization)
  Sender: FDA-Public Use
  Company Number: 2004045641

PATIENT
  Age: 49 Year
  Sex: Female
  Weight: 69 kg

DRUGS (5)
  1. ATORVASTATIN CALCIUM [Suspect]
     Indication: LIPID METABOLISM DISORDER
     Dosage: ORAL
     Route: 048
     Dates: end: 20040417
  2. LAMALINE (BELLADONNA EXTRACT, CAFFEINE, OPIUM TINCTURE, PARACETAMOL) [Suspect]
     Indication: PAIN
     Dosage: ORAL
     Route: 048
     Dates: end: 20040417
  3. ACETAMINOPHEN [Suspect]
     Indication: PAIN
     Dosage: ORAL
     Route: 048
     Dates: end: 20040417
  4. SOTALOL HCL [Concomitant]
  5. ENOXAPARIN SODIUM [Concomitant]

REACTIONS (6)
  - ALANINE AMINOTRANSFERASE INCREASED [None]
  - ASPARTATE AMINOTRANSFERASE INCREASED [None]
  - ASTHENIA [None]
  - BLOOD ALKALINE PHOSPHATASE INCREASED [None]
  - GAMMA-GLUTAMYLTRANSFERASE INCREASED [None]
  - PAIN [None]
